FAERS Safety Report 7360352-X (Version None)
Quarter: 2011Q1

REPORT INFORMATION
  Report Type: 
  Country: None (occurrence: None)
  Receive Date: 20110318
  Receipt Date: 20110309
  Transmission Date: 20110831
  Serious: Yes (Other)
  Sender: FDA-Public Use
  Company Number: US-JNJFOC-20100607172

PATIENT
  Sex: Male
  Weight: 65.77 kg

DRUGS (4)
  1. ZANTAC [Concomitant]
     Indication: DYSPEPSIA
     Route: 048
  2. FENTANYL-100 [Suspect]
     Indication: PAIN
     Route: 062
  3. DURAGESIC-50 [Suspect]
     Indication: PAIN
     Route: 062
  4. PRAVACHOL [Concomitant]
     Indication: BLOOD CHOLESTEROL INCREASED
     Route: 048

REACTIONS (7)
  - HYPERHIDROSIS [None]
  - PRODUCT ADHESION ISSUE [None]
  - CROHN'S DISEASE [None]
  - INADEQUATE ANALGESIA [None]
  - APPLICATION SITE RASH [None]
  - APPLICATION SITE REACTION [None]
  - DEVICE LEAKAGE [None]
